FAERS Safety Report 12786200 (Version 1)
Quarter: 2016Q3

REPORT INFORMATION
  Report Type: Spontaneous
  Country: US (occurrence: US)
  Receive Date: 20160927
  Receipt Date: 20160927
  Transmission Date: 20161109
  Serious: No
  Sender: FDA-Public Use
  Company Number: US-FRI-1000085647

PATIENT
  Sex: Female

DRUGS (4)
  1. LINZESS [Suspect]
     Active Substance: LINACLOTIDE
     Dosage: 290 ?G, UNK
     Route: 048
     Dates: start: 20160622
  2. METOPROLOL. [Concomitant]
     Active Substance: METOPROLOL
     Indication: HYPERTENSION
     Dosage: 50 MG, QD
     Route: 048
  3. ASA [Concomitant]
     Active Substance: ASPIRIN
     Dosage: 81 MG, QD
     Route: 048
  4. LINZESS [Suspect]
     Active Substance: LINACLOTIDE
     Indication: CONSTIPATION
     Dosage: 290 ?G, QD
     Route: 048
     Dates: start: 201606, end: 20160621

REACTIONS (5)
  - Off label use [Not Recovered/Not Resolved]
  - Intentional product misuse [Recovered/Resolved]
  - Off label use [Not Recovered/Not Resolved]
  - Diarrhoea [Recovered/Resolved]
  - Frequent bowel movements [Recovered/Resolved]

NARRATIVE: CASE EVENT DATE: 201606
